FAERS Safety Report 12735681 (Version 2)
Quarter: 2016Q3

REPORT INFORMATION
  Report Type: Spontaneous
  Country: US (occurrence: US)
  Receive Date: 20160912
  Receipt Date: 20160916
  Transmission Date: 20161109
  Serious: Yes (Other)
  Sender: FDA-Public Use
  Company Number: US-HORIZON-RAV-0180-2016

PATIENT
  Age: 4 Year
  Sex: Female

DRUGS (5)
  1. PROGRAF [Concomitant]
     Active Substance: TACROLIMUS\TACROLIMUS ANHYDROUS
     Dosage: BID
  2. RAVICTI [Suspect]
     Active Substance: GLYCEROL PHENYLBUTYRATE
     Indication: ORNITHINE TRANSCARBAMOYLASE DEFICIENCY
     Dosage: 2.4 ML TID
     Dates: start: 20140807
  3. PRO-PHREE [Concomitant]
  4. ANAMIX JR. [Concomitant]
  5. CITRULLINE [Concomitant]
     Active Substance: CITRULLINE
     Dosage: 1 G

REACTIONS (2)
  - Liver transplant [Unknown]
  - Liver transplant rejection [Unknown]

NARRATIVE: CASE EVENT DATE: 20160715
